FAERS Safety Report 7013589-3 (Version None)
Quarter: 2010Q3

REPORT INFORMATION
  Report Type: 
  Country: None (occurrence: None)
  Receive Date: 20100924
  Receipt Date: 20100916
  Transmission Date: 20110219
  Serious: Yes (Disabling)
  Sender: FDA-Public Use
  Company Number: GXKR2010GB10634

PATIENT
  Sex: Male

DRUGS (8)
  1. AMLODIPINE [Suspect]
     Dosage: 10 MG, QD
     Route: 048
  2. CEFALEXIN (NGX) [Suspect]
     Dosage: 250 MG, BID
     Route: 048
  3. LOSARTAN POTASSIUM (NGX) [Suspect]
     Dosage: 50 MG, QD
     Route: 048
  4. MIRTAZAPINE [Suspect]
     Dosage: 45 MG, QD
     Route: 048
  5. RANITIDINE HCL [Suspect]
     Dosage: 150 MG, BID
     Route: 048
  6. ACYCLOVIR SODIUM [Suspect]
     Dosage: 400 MG, TID
     Route: 048
  7. COTRIM [Suspect]
     Dosage: 480 MG, UNK
     Route: 048
  8. FOLIC ACID [Concomitant]
     Dosage: 5 MG
     Route: 048

REACTIONS (3)
  - ANAEMIA [None]
  - ARTHRALGIA [None]
  - MYALGIA [None]
